FAERS Safety Report 19301328 (Version 1)
Quarter: 2021Q2

REPORT INFORMATION
  Report Type: Spontaneous
  Country: US (occurrence: US)
  Receive Date: 20210525
  Receipt Date: 20210525
  Transmission Date: 20210717
  Serious: No
  Sender: FDA-Public Use
  Company Number: US-SA-2021SA170922

PATIENT
  Age: 52 Year
  Sex: Male

DRUGS (4)
  1. STATIN [NYSTATIN] [Concomitant]
     Active Substance: NYSTATIN
  2. FENOFIBRATE. [Concomitant]
     Active Substance: FENOFIBRATE
  3. ZETIA [Concomitant]
     Active Substance: EZETIMIBE
  4. DUPIXENT [Suspect]
     Active Substance: DUPILUMAB
     Indication: DERMATITIS ATOPIC
     Dosage: UNK
     Route: 058
     Dates: end: 20210104

REACTIONS (2)
  - Product dose omission issue [Unknown]
  - Pruritus [Unknown]

NARRATIVE: CASE EVENT DATE: 2021
